FAERS Safety Report 10590998 (Version 2)
Quarter: 2014Q4

REPORT INFORMATION
  Report Type: Spontaneous
  Country: JP (occurrence: JP)
  Receive Date: 20141118
  Receipt Date: 20141118
  Transmission Date: 20150529
  Serious: Yes (Death, Other)
  Sender: FDA-Public Use
  Company Number: JP-PFIZER INC-2014289816

PATIENT
  Age: 20 Year
  Sex: Male
  Weight: 56 kg

DRUGS (3)
  1. ZITHROMAC [Suspect]
     Active Substance: AZITHROMYCIN DIHYDRATE
     Indication: PNEUMONIA MYCOPLASMAL
     Dosage: 500 MG, SINGLE
     Route: 041
     Dates: start: 20140919, end: 20140919
  2. HANP [Concomitant]
     Active Substance: CARPERITIDE
     Dosage: UNK
     Dates: start: 20140919
  3. FUROSEMIDE. [Concomitant]
     Active Substance: FUROSEMIDE
     Dosage: UNK
     Dates: start: 20140919

REACTIONS (2)
  - Anaphylactic shock [Fatal]
  - Cardiac failure [Fatal]

NARRATIVE: CASE EVENT DATE: 20140919
